FAERS Safety Report 8837675 (Version 1)
Quarter: 2012Q4

REPORT INFORMATION
  Report Type: 
  Country: GB (occurrence: GB)
  Receive Date: 20121012
  Receipt Date: 20121012
  Transmission Date: 20130627
  Serious: Yes (Life-Threatening, Other)
  Sender: FDA-Public Use
  Company Number: GB-MERCK-1210GBR002294

PATIENT
  Age: 60 Year
  Sex: Female
  Weight: 70 kg

DRUGS (1)
  1. ORGARAN [Suspect]
     Indication: ANTICOAGULANT THERAPY
     Route: 042

REACTIONS (2)
  - Gastrointestinal haemorrhage [Recovering/Resolving]
  - Hepatorenal failure [Recovering/Resolving]
